FAERS Safety Report 25320477 (Version 6)
Quarter: 2025Q4

REPORT INFORMATION
  Report Type: Report from Study
  Country: US (occurrence: US)
  Receive Date: 20250515
  Receipt Date: 20251031
  Transmission Date: 20260118
  Serious: No
  Sender: TRAVERE THERAPEUTICS
  Company Number: US-TRAVERE-2025TVT00693

PATIENT
  Age: 33 Year
  Sex: Male

DRUGS (12)
  1. FILSPARI [Suspect]
     Active Substance: SPARSENTAN
     Indication: IgA nephropathy
     Route: 048
  2. FILSPARI [Suspect]
     Active Substance: SPARSENTAN
     Route: 048
     Dates: start: 202503
  3. TARPEYO [Suspect]
     Active Substance: BUDESONIDE
     Indication: Product used for unknown indication
  4. AMLODIPINE BESYLATE [Concomitant]
     Active Substance: AMLODIPINE BESYLATE
  5. CARVEDILOL [Concomitant]
     Active Substance: CARVEDILOL
  6. HYDRALAZINE [Concomitant]
     Active Substance: HYDRALAZINE HYDROCHLORIDE
  7. LOSARTAN [Concomitant]
     Active Substance: LOSARTAN
  8. FARXIGA [Concomitant]
     Active Substance: DAPAGLIFLOZIN PROPANEDIOL
  9. CITALOPRAM [Concomitant]
     Active Substance: CITALOPRAM
  10. VITAMIN D [Concomitant]
     Active Substance: VITAMIN D NOS
  11. AMOXICILLIN [Concomitant]
     Active Substance: AMOXICILLIN
  12. FISH OIL [Concomitant]
     Active Substance: FISH OIL

REACTIONS (11)
  - Oropharyngeal pain [Unknown]
  - Blood creatinine increased [Unknown]
  - Haemoglobin decreased [Unknown]
  - Mean cell haemoglobin concentration decreased [Unknown]
  - Urine protein/creatinine ratio increased [Unknown]
  - Asthenia [Unknown]
  - Nasal congestion [Unknown]
  - Rash papular [None]
  - Upper respiratory tract infection [Unknown]
  - Contraindicated product administered [Unknown]
  - Product administration error [Unknown]

NARRATIVE: CASE EVENT DATE: 20250502
